FAERS Safety Report 10143690 (Version 1)
Quarter: 2014Q2

REPORT INFORMATION
  Report Type: Spontaneous
  Country: US (occurrence: US)
  Receive Date: 20140430
  Receipt Date: 20140430
  Transmission Date: 20141212
  Serious: No
  Sender: FDA-Public Use
  Company Number: US-PFIZER INC-2014119070

PATIENT
  Age: 39 Year
  Sex: Female
  Weight: 117.91 kg

DRUGS (2)
  1. EFFEXOR XR [Suspect]
     Indication: ANXIETY
     Dosage: UNK, DAILY
  2. EFFEXOR XR [Suspect]
     Indication: PANIC ATTACK

REACTIONS (2)
  - Weight increased [Unknown]
  - Feeling abnormal [Unknown]
